FAERS Safety Report 24935904 (Version 1)
Quarter: 2025Q1

REPORT INFORMATION
  Report Type: Report from Study
  Country: US (occurrence: US)
  Receive Date: 20250206
  Receipt Date: 20250206
  Transmission Date: 20250408
  Serious: Yes (Hospitalization)
  Sender: EXELIXIS
  Company Number: US-EXELIXIS-EXL-2024-000505

PATIENT
  Sex: Male
  Weight: 56.689 kg

DRUGS (9)
  1. CABOMETYX [Suspect]
     Active Substance: CABOZANTINIB S-MALATE
     Indication: Renal cancer
     Dosage: 60 MG, QD
     Route: 048
     Dates: start: 202407
  2. AMANTADINE [Concomitant]
     Active Substance: AMANTADINE
  3. ATORVASTATIN CALCIUM [Concomitant]
     Active Substance: ATORVASTATIN CALCIUM
  4. BACLOFEN [Concomitant]
     Active Substance: BACLOFEN
  5. CITALOPRAM [Concomitant]
     Active Substance: CITALOPRAM
  6. ETODOLAC [Concomitant]
     Active Substance: ETODOLAC
  7. MIRTAZAPINE [Concomitant]
     Active Substance: MIRTAZAPINE
  8. PANTOPRAZOLE SODIUM [Concomitant]
     Active Substance: PANTOPRAZOLE SODIUM
  9. TYLENOL [Concomitant]
     Active Substance: ACETAMINOPHEN

REACTIONS (2)
  - Diarrhoea [Recovering/Resolving]
  - Cholelithiasis [Recovering/Resolving]
